FAERS Safety Report 5563267-2 (Version None)
Quarter: 2007Q4

REPORT INFORMATION
  Report Type: 
  Country: None (occurrence: None)
  Receive Date: 20071211
  Receipt Date: 20071126
  Transmission Date: 20080405
  Serious: Yes (Other)
  Sender: FDA-Public Use
  Company Number: 17929

PATIENT

DRUGS (4)
  1. CARBOPLATIN [Suspect]
     Indication: HEPATIC NEOPLASM MALIGNANT
     Dosage: 400 MG/M2 FREQ
  2. ADRIAMYCIN PFS [Suspect]
     Indication: HEPATIC NEOPLASM MALIGNANT
     Dosage: 50 MG FREQ
  3. RADIOTHERAPY [Suspect]
     Indication: HEPATIC NEOPLASM MALIGNANT
  4. CARBOPLATIN [Suspect]

REACTIONS (1)
  - HEPATIC FAILURE [None]
